FAERS Safety Report 8125424-0 (Version None)
Quarter: 2012Q1

REPORT INFORMATION
  Report Type: 
  Country: None (occurrence: None)
  Receive Date: 20120209
  Receipt Date: 20120201
  Transmission Date: 20120608
  Serious: Yes (Hospitalization)
  Sender: FDA-Public Use
  Company Number: US-MERCK-1107USA01259

PATIENT
  Age: 71 Year
  Sex: Female
  Weight: 55 kg

DRUGS (14)
  1. FOSAMAX [Suspect]
     Indication: OSTEOPOROSIS
     Route: 048
     Dates: start: 19950101, end: 20080501
  2. PRAVASTATIN SODIUM [Concomitant]
     Indication: BLOOD CHOLESTEROL
     Route: 065
     Dates: start: 20080101
  3. CHOLECALCIFEROL [Concomitant]
     Route: 065
     Dates: start: 19800101
  4. FOSAMAX [Suspect]
     Route: 048
     Dates: start: 19950101, end: 20011008
  5. BONIVA [Suspect]
     Route: 065
     Dates: start: 20080501
  6. VITAMINS (UNSPECIFIED) [Concomitant]
     Route: 065
     Dates: start: 19800101
  7. BONIVA [Suspect]
     Route: 065
     Dates: start: 20101001
  8. CALCIUM (UNSPECIFIED) [Concomitant]
     Route: 065
     Dates: start: 19800101
  9. FOSAMAX [Suspect]
     Route: 048
     Dates: start: 20020901, end: 20100801
  10. DYAZIDE [Concomitant]
     Indication: HYPERTENSION
     Route: 065
     Dates: start: 20000101
  11. LISINOPRIL [Concomitant]
     Indication: HYPERTENSION
     Route: 048
     Dates: start: 20000101
  12. FOSAMAX [Suspect]
     Route: 048
     Dates: end: 20100801
  13. OMEPRAZOLE [Concomitant]
     Route: 065
     Dates: start: 20101021
  14. OMEGA-3 MARINE TRIGLYCERIDES [Concomitant]
     Route: 065
     Dates: start: 19800101

REACTIONS (23)
  - BURNS SECOND DEGREE [None]
  - ARTHRALGIA [None]
  - DRUG INTOLERANCE [None]
  - ASTHENIA [None]
  - BLOOD GLUCOSE INCREASED [None]
  - INTERVERTEBRAL DISC PROTRUSION [None]
  - MUSCLE SPASMS [None]
  - HAEMORRHOIDS [None]
  - CATARACT [None]
  - FACET JOINT SYNDROME [None]
  - DRUG HYPERSENSITIVITY [None]
  - FEMUR FRACTURE [None]
  - ACUTE SINUSITIS [None]
  - ATROPHIC VULVOVAGINITIS [None]
  - SPINAL COLUMN STENOSIS [None]
  - ARTHRITIS [None]
  - OSTEOPENIA [None]
  - ANAEMIA OF CHRONIC DISEASE [None]
  - PAIN IN EXTREMITY [None]
  - LOW DENSITY LIPOPROTEIN INCREASED [None]
  - URTICARIA [None]
  - COUGH [None]
  - DIVERTICULUM [None]
